FAERS Safety Report 17623307 (Version 2)
Quarter: 2020Q2

REPORT INFORMATION
  Report Type: Spontaneous
  Country: US (occurrence: US)
  Receive Date: 20200403
  Receipt Date: 20200504
  Transmission Date: 20200713
  Serious: No
  Sender: FDA-Public Use
  Company Number: US-BAUSCH-BL-2020-007291

PATIENT
  Age: 59 Year
  Sex: Female

DRUGS (4)
  1. SYNTHROID [Concomitant]
     Active Substance: LEVOTHYROXINE SODIUM
     Indication: PRODUCT USED FOR UNKNOWN INDICATION
     Route: 048
  2. LATANOPROST. [Suspect]
     Active Substance: LATANOPROST
     Indication: PRODUCT USE IN UNAPPROVED INDICATION
  3. PROTONIX [Concomitant]
     Active Substance: PANTOPRAZOLE SODIUM
     Indication: PRODUCT USED FOR UNKNOWN INDICATION
     Route: 048
  4. LATANOPROST. [Suspect]
     Active Substance: LATANOPROST
     Indication: DRY EYE
     Route: 047
     Dates: start: 20200302, end: 20200303

REACTIONS (5)
  - Eye irritation [Recovering/Resolving]
  - Product use in unapproved indication [Unknown]
  - Eye swelling [Recovering/Resolving]
  - Ocular hyperaemia [Recovering/Resolving]
  - Reaction to preservatives [Recovering/Resolving]

NARRATIVE: CASE EVENT DATE: 202003
